FAERS Safety Report 5140520-8 (Version None)
Quarter: 2006Q4

REPORT INFORMATION
  Report Type: 
  Country: None (occurrence: None)
  Receive Date: 20061025
  Receipt Date: 20061016
  Transmission Date: 20070319
  Serious: Yes (Life-Threatening)
  Sender: FDA-Public Use
  Company Number: ORACEA-2006-0024

PATIENT
  Sex: Female
  Weight: 77.1115 kg

DRUGS (9)
  1. ORACEA [Suspect]
     Indication: ROSACEA
     Dosage: 40MG QD PER ORAL
     Route: 048
     Dates: start: 20061001, end: 20061010
  2. METROCREAM [Concomitant]
  3. HYDROCHLOROTHIAZIDE [Concomitant]
  4. LEVOXYL [Concomitant]
  5. AMITRIPTYLINE HCL [Concomitant]
  6. MACROBID [Concomitant]
  7. ELMIRON [Concomitant]
  8. NORVASC [Concomitant]
  9. PREMARIN CREAM [Concomitant]

REACTIONS (3)
  - ANAPHYLACTIC REACTION [None]
  - HEADACHE [None]
  - PALPITATIONS [None]
